FAERS Safety Report 20474535 (Version 3)
Quarter: 2024Q2

REPORT INFORMATION
  Report Type: Report from Study
  Country: CA (occurrence: CA)
  Receive Date: 20220215
  Receipt Date: 20240402
  Transmission Date: 20240716
  Serious: Yes (Other)
  Sender: FDA-Public Use
  Company Number: CA-MYLANLABS-2021M1075616

PATIENT

DRUGS (2)
  1. HULIO [Suspect]
     Active Substance: ADALIMUMAB-FKJP
     Indication: Hidradenitis
     Dosage: UNK UNK, Q2W
     Route: 065
  2. HULIO [Suspect]
     Active Substance: ADALIMUMAB-FKJP
     Dosage: 40 MG, QWEEK (WEEKLY)
     Route: 058
     Dates: start: 20211002

REACTIONS (7)
  - Haematochezia [Unknown]
  - Faeces discoloured [Unknown]
  - Arthralgia [Recovered/Resolved]
  - Diarrhoea [Unknown]
  - Abdominal pain [Unknown]
  - Injection site erythema [Recovered/Resolved]
  - Injection site oedema [Recovered/Resolved]
